FAERS Safety Report 19588200 (Version 1)
Quarter: 2021Q3

REPORT INFORMATION
  Report Type: Spontaneous
  Country: US (occurrence: US)
  Receive Date: 20210720
  Receipt Date: 20210720
  Transmission Date: 20211014
  Serious: Yes (Hospitalization)
  Sender: FDA-Public Use
  Company Number: None

PATIENT
  Age: 36 Year
  Sex: Male
  Weight: 127 kg

DRUGS (2)
  1. IFOSFAMIDE. [Suspect]
     Active Substance: IFOSFAMIDE
     Dates: end: 20210406
  2. TAXOL [Concomitant]
     Active Substance: PACLITAXEL
     Dates: end: 20210404

REACTIONS (8)
  - Hypotension [None]
  - Dizziness [None]
  - Pyrexia [None]
  - Tachycardia [None]
  - Infusion site pain [None]
  - Infection [None]
  - Deep vein thrombosis [None]
  - Pain [None]

NARRATIVE: CASE EVENT DATE: 20210416
